FAERS Safety Report 18390978 (Version 3)
Quarter: 2020Q4

REPORT INFORMATION
  Report Type: Spontaneous
  Country: US (occurrence: US)
  Receive Date: 20201016
  Receipt Date: 20201211
  Transmission Date: 20210114
  Serious: No
  Sender: FDA-Public Use
  Company Number: US-ASTRAZENECA-2020SF30462

PATIENT
  Sex: Male
  Weight: 104.3 kg

DRUGS (1)
  1. SYMBICORT [Suspect]
     Active Substance: BUDESONIDE\FORMOTEROL FUMARATE DIHYDRATE
     Indication: ASTHMA
     Dosage: 160/4.5MCG TWICE DAILY
     Route: 055
     Dates: start: 201910

REACTIONS (8)
  - Chest discomfort [Not Recovered/Not Resolved]
  - Drug dose omission by device [Unknown]
  - Oropharyngeal discomfort [Not Recovered/Not Resolved]
  - Device failure [Unknown]
  - Symptom recurrence [Not Recovered/Not Resolved]
  - Intentional device misuse [Unknown]
  - Device malfunction [Unknown]
  - Wrong technique in device usage process [Unknown]
